FAERS Safety Report 19719488 (Version 1)
Quarter: 2021Q3

REPORT INFORMATION
  Report Type: Spontaneous
  Country: GB (occurrence: GB)
  Receive Date: 20210819
  Receipt Date: 20210819
  Transmission Date: 20211014
  Serious: Yes (Death, Life-Threatening, Hospitalization, Other)
  Sender: FDA-Public Use
  Company Number: GB-MYLANLABS-2012SP004235

PATIENT
  Age: 49 Year
  Sex: Male
  Weight: 73 kg

DRUGS (6)
  1. TRIMETHOPRIM. [Suspect]
     Active Substance: TRIMETHOPRIM
     Indication: PRODUCT USED FOR UNKNOWN INDICATION
     Dosage: 200 MILLIGRAM
  2. NAPROXEN MYLAN [Suspect]
     Active Substance: NAPROXEN
     Indication: PRODUCT USED FOR UNKNOWN INDICATION
     Dosage: UNK
     Dates: start: 20091204
  3. CLARITHROMYCIN. [Suspect]
     Active Substance: CLARITHROMYCIN
     Indication: PRODUCT USED FOR UNKNOWN INDICATION
     Dosage: UNK
     Dates: start: 20091204
  4. CIPROFLOXACIN. [Suspect]
     Active Substance: CIPROFLOXACIN
     Indication: PROSTATITIS
     Dosage: 250 MILLIGRAM, BID
     Route: 048
     Dates: start: 20091123, end: 20100113
  5. OFLOXACIN. [Suspect]
     Active Substance: OFLOXACIN
     Indication: PROSTATITIS
     Dosage: 500 MILLIGRAM
     Route: 048
     Dates: start: 20091123, end: 20100113
  6. AMOXICILLIN/CLAVULANIC ACID [Suspect]
     Active Substance: AMOXICILLIN\CLAVULANIC ACID
     Indication: PRODUCT USED FOR UNKNOWN INDICATION
     Dosage: 625 MILLIGRAM, TID

REACTIONS (64)
  - Mental disorder [Unknown]
  - Headache [Unknown]
  - Tremor [Unknown]
  - Bone pain [Unknown]
  - Arthralgia [Unknown]
  - Pain [Unknown]
  - Muscle spasms [Unknown]
  - Neuralgia [Unknown]
  - Chest pain [Unknown]
  - Dysaesthesia [Unknown]
  - Arrhythmia [Unknown]
  - Fibromyalgia [Unknown]
  - Head discomfort [Unknown]
  - Lymphadenopathy [Unknown]
  - Liver tenderness [Unknown]
  - Completed suicide [Fatal]
  - Pain in extremity [Unknown]
  - Palpitations [Unknown]
  - Seizure [Unknown]
  - Ototoxicity [Unknown]
  - Gait disturbance [Unknown]
  - Wheezing [Unknown]
  - Overdose [Unknown]
  - Drug hypersensitivity [Unknown]
  - Musculoskeletal stiffness [Unknown]
  - Feeling abnormal [Unknown]
  - Depression [Not Recovered/Not Resolved]
  - Paraesthesia [Unknown]
  - Neuropathy peripheral [Unknown]
  - Neck pain [Unknown]
  - Diarrhoea [Unknown]
  - Tachycardia [Unknown]
  - Nausea [Unknown]
  - Fatigue [Unknown]
  - Rash papular [Unknown]
  - Speech disorder [Unknown]
  - Weight decreased [Unknown]
  - Hypoaesthesia [Unknown]
  - Extrasystoles [Unknown]
  - Anxiety [Unknown]
  - Electric shock sensation [Unknown]
  - Post-traumatic stress disorder [Unknown]
  - Muscle atrophy [Unknown]
  - Anhedonia [Unknown]
  - Hyperacusis [Unknown]
  - Agitation [Unknown]
  - Decreased appetite [Unknown]
  - Balance disorder [Unknown]
  - Tendonitis [Unknown]
  - Muscle contractions involuntary [Unknown]
  - Throat tightness [Unknown]
  - Motion sickness [Unknown]
  - Insomnia [Unknown]
  - Tinnitus [Recovered/Resolved]
  - Dysphagia [Unknown]
  - Prostatitis [Unknown]
  - Constipation [Unknown]
  - Atrophy [Unknown]
  - Asthenia [Unknown]
  - Panic reaction [Unknown]
  - Dyspnoea [Unknown]
  - Cognitive disorder [Unknown]
  - Burning sensation [Unknown]
  - Malaise [Unknown]

NARRATIVE: CASE EVENT DATE: 20091201
